FAERS Safety Report 24087221 (Version 2)
Quarter: 2024Q3

REPORT INFORMATION
  Report Type: Report from Study
  Country: US (occurrence: US)
  Receive Date: 20240713
  Receipt Date: 20240801
  Transmission Date: 20241017
  Serious: No
  Sender: SANOFI AVENTIS
  Company Number: US-SA-SAC20240711001006

PATIENT
  Age: 63 Year
  Sex: Male

DRUGS (1)
  1. DUPIXENT [Suspect]
     Active Substance: DUPILUMAB
     Indication: Dermatitis atopic
     Dosage: 300 MG, QOW
     Route: 058
     Dates: start: 20240530, end: 202407

REACTIONS (5)
  - Eye pain [Recovered/Resolved]
  - Rhinorrhoea [Recovered/Resolved]
  - Oropharyngeal pain [Recovered/Resolved]
  - Myalgia [Recovered/Resolved]
  - Muscle spasms [Unknown]

NARRATIVE: CASE EVENT DATE: 20240101
